FAERS Safety Report 17213236 (Version 1)
Quarter: 2019Q4

REPORT INFORMATION
  Report Type: Spontaneous
  Country: CH (occurrence: CH)
  Receive Date: 20191230
  Receipt Date: 20191230
  Transmission Date: 20200122
  Serious: Yes (Life-Threatening, Hospitalization, Other)
  Sender: FDA-Public Use
  Company Number: CH-TEVA-2019-CH-1161580

PATIENT
  Age: 77 Year
  Sex: Female

DRUGS (18)
  1. CO-AMOXI-MEPHA [Suspect]
     Active Substance: AMOXICILLIN\CLAVULANATE POTASSIUM
     Dosage: 1875 MILLIGRAM DAILY;
     Route: 048
     Dates: start: 20190916, end: 20190917
  2. DALACIN C [Suspect]
     Active Substance: CLINDAMYCIN PHOSPHATE
     Indication: TENOSYNOVITIS
     Dosage: 900 MILLIGRAM DAILY;
     Route: 048
     Dates: start: 20190917, end: 20190922
  3. LYRICA [Concomitant]
     Active Substance: PREGABALIN
     Dosage: 200 MILLIGRAM DAILY;
     Route: 048
  4. ESOMEPRAZOL HELVEPHARM [Concomitant]
     Dosage: 40 MILLIGRAM DAILY;
     Route: 048
  5. LACRYCON [Concomitant]
     Active Substance: HYALURONATE SODIUM
     Dosage: AS NECESSARY
     Route: 047
     Dates: end: 20190927
  6. FUROSPIR 50MG/20MG [Concomitant]
     Dosage: .5 DOSAGE FORMS DAILY;
     Route: 048
  7. ALDARA 5% [Concomitant]
     Dosage: 5X PER WEEK BEFORE BED-TIME, FOR 8 WEEKS IN TOTAL
     Route: 061
     Dates: start: 201811, end: 20191124
  8. BEPANTHEN 5% [Concomitant]
     Dosage: AS NECESSARY
     Route: 061
     Dates: end: 20190927
  9. METHOTREXATE FARMOS [Suspect]
     Active Substance: METHOTREXATE
     Dosage: 2.5 TABLETS EACH THURSDAY
     Route: 048
     Dates: end: 20190927
  10. EUTHYROX [Concomitant]
     Active Substance: LEVOTHYROXINE SODIUM
     Dosage: .075 MILLIGRAM DAILY;
     Route: 048
  11. TEMGESIC [Concomitant]
     Active Substance: BUPRENORPHINE HYDROCHLORIDE
     Dosage: AS NECESSARY
     Route: 060
     Dates: end: 20190927
  12. CO-AMOXI-MEPHA [Suspect]
     Active Substance: AMOXICILLIN\CLAVULANATE POTASSIUM
     Indication: TENOSYNOVITIS
     Dosage: 1875 MILLIGRAM DAILY;
     Route: 048
     Dates: start: 20190904, end: 20190907
  13. MAGNEGON [Concomitant]
     Dosage: AS NECESSARY
     Route: 048
     Dates: end: 20190924
  14. METO ZEROK [Concomitant]
     Active Substance: METOPROLOL SUCCINATE
     Dosage: 12.5 MILLIGRAM DAILY;
     Route: 048
  15. SIRDALUD [Concomitant]
     Active Substance: TIZANIDINE
     Dosage: AS NECESSARY
     Route: 048
     Dates: end: 20190924
  16. ZOLDORM [Concomitant]
     Active Substance: ZOLPIDEM TARTRATE
     Dosage: AS NECESSARY
     Route: 048
     Dates: end: 20190927
  17. MARCOUMAR [Concomitant]
     Active Substance: PHENPROCOUMON
     Dosage: 3 MILLIGRAM DAILY; IN ACCORDANCE WITH THE INR
     Route: 048
     Dates: end: 20190927
  18. ACIDUM FOLICUM STREULI [Concomitant]
     Active Substance: FOLIC ACID
     Dosage: EACH WEDNESDAY AND FRIDAY
     Route: 048
     Dates: end: 20190927

REACTIONS (2)
  - Acute generalised exanthematous pustulosis [Recovering/Resolving]
  - Pancytopenia [Recovering/Resolving]

NARRATIVE: CASE EVENT DATE: 20190923
